FAERS Safety Report 8985451 (Version 1)
Quarter: 2012Q4

REPORT INFORMATION
  Report Type: 
  Country: US (occurrence: US)
  Receive Date: 20121226
  Receipt Date: 20121226
  Transmission Date: 20130627
  Serious: Yes (Other)
  Sender: FDA-Public Use
  Company Number: US-JNJFOC-20121209452

PATIENT
  Sex: Female

DRUGS (6)
  1. XARELTO [Suspect]
     Indication: THROMBOSIS PROPHYLAXIS
     Route: 048
     Dates: start: 201212, end: 201212
  2. XARELTO [Suspect]
     Indication: THROMBOSIS PROPHYLAXIS
     Route: 048
     Dates: start: 201211, end: 201212
  3. XARELTO [Suspect]
     Indication: THROMBOSIS PROPHYLAXIS
     Route: 048
     Dates: start: 201211, end: 201212
  4. XARELTO [Suspect]
     Indication: THROMBOSIS PROPHYLAXIS
     Route: 048
     Dates: start: 201212, end: 201212
  5. NORTRIPTYLINE [Concomitant]
     Indication: NEUROPATHY PERIPHERAL
     Route: 065
  6. COREG [Concomitant]
     Indication: BLOOD CHOLESTEROL
     Route: 065

REACTIONS (2)
  - Drug intolerance [Recovered/Resolved]
  - Urticaria [Recovering/Resolving]
